FAERS Safety Report 6413361-9 (Version None)
Quarter: 2009Q4

REPORT INFORMATION
  Report Type: 
  Country: None (occurrence: None)
  Receive Date: 20091022
  Receipt Date: 20091022
  Transmission Date: 20100525
  Serious: Yes (Hospitalization)
  Sender: FDA-Public Use
  Company Number: None

PATIENT
  Sex: Female
  Weight: 54.8852 kg

DRUGS (2)
  1. SORAFENIB [Suspect]
     Indication: PANCREATIC CARCINOMA
     Dosage: 400 MG PO DAILY
     Route: 048
     Dates: start: 20090924, end: 20091018
  2. ERLOTINIB [Suspect]
     Indication: PANCREATIC CARCINOMA
     Dosage: 150 MG PO DAILY
     Route: 048
     Dates: start: 20090924, end: 20091018

REACTIONS (4)
  - CHOLANGITIS [None]
  - DISSEMINATED INTRAVASCULAR COAGULATION [None]
  - JAUNDICE CHOLESTATIC [None]
  - SEPTIC SHOCK [None]
